FAERS Safety Report 20176980 (Version 8)
Quarter: 2023Q1

REPORT INFORMATION
  Report Type: Report from Study
  Country: DE (occurrence: DE)
  Receive Date: 20211213
  Receipt Date: 20230301
  Transmission Date: 20230417
  Serious: Yes (Hospitalization, Other)
  Sender: FDA-Public Use
  Company Number: DE-ROCHE-2914332

PATIENT
  Age: 66 Year
  Sex: Male

DRUGS (17)
  1. RITUXIMAB [Suspect]
     Active Substance: RITUXIMAB
     Indication: Neuromyelitis optica spectrum disorder
     Dosage: UNK
     Route: 042
     Dates: start: 20210803
  2. RITUXIMAB [Suspect]
     Active Substance: RITUXIMAB
     Dosage: UNK
     Route: 042
     Dates: start: 20210818, end: 20220831
  3. RITUXIMAB [Suspect]
     Active Substance: RITUXIMAB
     Dosage: FREQUENCY TIME: 378 DAYS
     Route: 042
     Dates: start: 20220831, end: 20220831
  4. RITUXIMAB [Suspect]
     Active Substance: RITUXIMAB
     Dosage: FREQ. 15 DAY
     Route: 042
     Dates: start: 20210818
  5. PALEXIA [Concomitant]
     Active Substance: TAPENTADOL HYDROCHLORIDE
     Dosage: 50 MG, FREQ:.5 D;
  6. ESOMEPRAZOLE [Concomitant]
     Active Substance: ESOMEPRAZOLE
     Dosage: 40 MG, FREQ:.5 D; 1-0-1
  7. CLONIDINE [Concomitant]
     Active Substance: CLONIDINE
     Dosage: 0.15 MG
  8. ENOXAPARIN SODIUM [Concomitant]
     Active Substance: ENOXAPARIN SODIUM
     Dosage: 40 MG, 1X/DAY
  9. LACTULOSE [Concomitant]
     Active Substance: LACTULOSE
     Dosage: UNK
  10. CHOLECALCIFEROL [Concomitant]
     Active Substance: CHOLECALCIFEROL
     Dosage: 20000 UNIT NOT REPORTED
  11. MIRTAZAPINE [Concomitant]
     Active Substance: MIRTAZAPINE
     Dosage: 14 MG, 1X/DAY
  12. MIRTAZAPINE [Concomitant]
     Active Substance: MIRTAZAPINE
     Dosage: 15 MG, 1X/DAY
  13. PREDNISOLONE [Concomitant]
     Active Substance: PREDNISOLONE
     Dosage: 20 MG
  14. PREGABALIN [Concomitant]
     Active Substance: PREGABALIN
     Dosage: 1-2-2-AS NEEDED 1
  15. CITALOPRAM [Concomitant]
     Active Substance: CITALOPRAM HYDROBROMIDE
     Dosage: 10 MG
  16. DULOXETINE [Concomitant]
     Active Substance: DULOXETINE
     Dosage: 30 MG, 1X/DAY
  17. PALEXIA [Concomitant]
     Active Substance: TAPENTADOL HYDROCHLORIDE
     Dosage: 50 MG, FREQ: 0.5 DAY

REACTIONS (14)
  - Pneumonia [Recovered/Resolved]
  - Pseudomonas infection [Not Recovered/Not Resolved]
  - Klebsiella infection [Not Recovered/Not Resolved]
  - Immunodeficiency [Recovered/Resolved]
  - B-lymphocyte count abnormal [Not Recovered/Not Resolved]
  - Dyspnoea [Recovered/Resolved]
  - Pain in extremity [Recovering/Resolving]
  - Sepsis [Unknown]
  - Cystitis noninfective [Unknown]
  - Obstructive airways disorder [Recovering/Resolving]
  - COVID-19 [Recovered/Resolved]
  - Depressed mood [Recovering/Resolving]
  - Off label use [Unknown]
  - Sleep apnoea syndrome [Recovering/Resolving]

NARRATIVE: CASE EVENT DATE: 20210803
